FAERS Safety Report 12580718 (Version 2)
Quarter: 2016Q3

REPORT INFORMATION
  Report Type: Report from Study
  Country: US (occurrence: US)
  Receive Date: 20160721
  Receipt Date: 20160725
  Transmission Date: 20161109
  Serious: Yes (Other)
  Sender: FDA-Public Use
  Company Number: PHHO2016US010154

PATIENT
  Age: 57 Year
  Sex: Male
  Weight: 95.24 kg

DRUGS (9)
  1. TRAMETINIB [Suspect]
     Active Substance: TRAMETINIB
     Indication: MALIGNANT MELANOMA
     Dosage: 2 MG, BID (QAM)
     Route: 048
     Dates: start: 20160527, end: 20160630
  2. COQ10 [Concomitant]
     Active Substance: UBIDECARENONE
     Indication: MINERAL SUPPLEMENTATION
     Route: 065
  3. HYDROXYCHLOROQUINE [Suspect]
     Active Substance: HYDROXYCHLOROQUINE
     Indication: MALIGNANT MELANOMA
     Dosage: 600 MG, BID
     Route: 048
     Dates: start: 20160603, end: 20160630
  4. DABRAFENIB [Suspect]
     Active Substance: DABRAFENIB
     Indication: MALIGNANT MELANOMA
     Dosage: 150 MG, BID
     Route: 048
     Dates: start: 20160527, end: 20160630
  5. AZITHROMYCIN ANHYDROUS. [Suspect]
     Active Substance: AZITHROMYCIN ANHYDROUS
     Indication: UPPER RESPIRATORY TRACT INFECTION
     Dosage: 500 MG, QD (250 MGD) 2-5
     Route: 048
     Dates: start: 20160625, end: 20160630
  6. VITAMIN D [Concomitant]
     Active Substance: CHOLECALCIFEROL
     Indication: MINERAL SUPPLEMENTATION
     Route: 065
  7. TYLENOL [Suspect]
     Active Substance: ACETAMINOPHEN
     Indication: PYREXIA
     Dosage: 650 MG, Q6H
     Route: 048
     Dates: start: 20160626, end: 20160628
  8. TYLENOL [Suspect]
     Active Substance: ACETAMINOPHEN
     Indication: UPPER RESPIRATORY TRACT INFECTION
     Dosage: 325 MG, PRN (Q12H)
     Route: 048
     Dates: start: 20160629, end: 20160630
  9. VITAMIIN C [Concomitant]
     Active Substance: ASCORBIC ACID
     Indication: MINERAL SUPPLEMENTATION
     Route: 065

REACTIONS (3)
  - Blood alkaline phosphatase [Recovering/Resolving]
  - Alanine aminotransferase [Recovering/Resolving]
  - Aspartate aminotransferase [Recovering/Resolving]

NARRATIVE: CASE EVENT DATE: 20160701
